FAERS Safety Report 17415093 (Version 2)
Quarter: 2020Q1

REPORT INFORMATION
  Report Type: Spontaneous
  Country: GB (occurrence: GB)
  Receive Date: 20200213
  Receipt Date: 20200320
  Transmission Date: 20200409
  Serious: Yes (Hospitalization)
  Sender: FDA-Public Use
  Company Number: GB-VERTEX PHARMACEUTICALS-2020-000473

PATIENT
  Age: 26 Year
  Sex: Male
  Weight: 55 kg

DRUGS (11)
  1. FOLATE [Concomitant]
     Active Substance: FOLATE SODIUM
  2. KALYDECO [Suspect]
     Active Substance: IVACAFTOR
     Indication: CYSTIC FIBROSIS
     Dosage: 150 MG AT NIGHT
     Route: 048
     Dates: start: 20191111, end: 20200106
  3. FLUCLOXACILLIN SODIUM [Concomitant]
     Active Substance: FLUCLOXACILLIN SODIUM
  4. HUMAN INSULATARD [Concomitant]
     Active Substance: INSULIN HUMAN
  5. NOVORAPID [Concomitant]
     Active Substance: INSULIN ASPART
  6. VITAMIN B12 [COBAMAMIDE] [Concomitant]
  7. SYMKEVI [Suspect]
     Active Substance: IVACAFTOR\TEZACAFTOR
     Indication: CYSTIC FIBROSIS
     Dosage: 100MG TEZACAFTOR/150MG IVACAFTOR AM
     Route: 048
     Dates: start: 20191111, end: 20200106
  8. AZITHROMYCIN ANHYDROUS. [Concomitant]
     Active Substance: AZITHROMYCIN ANHYDROUS
  9. CREON [Concomitant]
     Active Substance: PANCRELIPASE AMYLASE\PANCRELIPASE LIPASE\PANCRELIPASE PROTEASE
  10. URSODEOXYCHOLIC ACID [Concomitant]
     Active Substance: URSODIOL
  11. OMEPRAZOLE. [Concomitant]
     Active Substance: OMEPRAZOLE

REACTIONS (7)
  - Headache [Not Recovered/Not Resolved]
  - Anaemia [Recovering/Resolving]
  - Dizziness [Unknown]
  - Pancytopenia [Recovering/Resolving]
  - Iron deficiency [Recovering/Resolving]
  - Rectal haemorrhage [Unknown]
  - Dyspnoea [Unknown]

NARRATIVE: CASE EVENT DATE: 202001
